FAERS Safety Report 6828418-8 (Version None)
Quarter: 2010Q3

REPORT INFORMATION
  Report Type: 
  Country: None (occurrence: None)
  Receive Date: 20100709
  Receipt Date: 20070208
  Transmission Date: 20110219
  Serious: No
  Sender: FDA-Public Use
  Company Number: US-PFIZER INC-2007011053

PATIENT
  Sex: Male
  Weight: 65.77 kg

DRUGS (3)
  1. CHANTIX [Suspect]
     Indication: SMOKING CESSATION THERAPY
     Route: 048
     Dates: start: 20070131
  2. ALCOHOL [Suspect]
  3. VITAMIN C [Concomitant]
     Route: 048

REACTIONS (2)
  - ERYTHEMA [None]
  - FEELING HOT [None]
